FAERS Safety Report 4763510-3 (Version None)
Quarter: 2005Q3

REPORT INFORMATION
  Report Type: 
  Country: None (occurrence: None)
  Receive Date: 20050908
  Receipt Date: 20050902
  Transmission Date: 20060218
  Serious: Yes (Death)
  Sender: FDA-Public Use
  Company Number: DE-JNJFOC-20050901002

PATIENT
  Age: 69 Year
  Sex: Female

DRUGS (4)
  1. LEVAQUIN [Suspect]
     Indication: RESPIRATORY DISORDER
  2. BACLOFEN [Concomitant]
  3. DIAZEPAM [Concomitant]
  4. ALBUTEROL W/IPRATROPIUM [Concomitant]

REACTIONS (3)
  - DEPRESSED LEVEL OF CONSCIOUSNESS [None]
  - RESPIRATORY FAILURE [None]
  - VENTRICULAR TACHYCARDIA [None]
